FAERS Safety Report 4357318-0 (Version None)
Quarter: 2004Q2

REPORT INFORMATION
  Report Type: 
  Country: None (occurrence: None)
  Receive Date: 20040511
  Receipt Date: 20040511
  Transmission Date: 20050107
  Serious: Yes (Hospitalization)
  Sender: FDA-Public Use
  Company Number: None

PATIENT
  Age: 75 Year
  Sex: Male
  Weight: 90.8 kg

DRUGS (8)
  1. INTEGRILIN (EPTIFIBATIDE) [Suspect]
     Indication: ANTIPLATELET THERAPY
     Dosage: 2 (8.5 ML BOLUSES) 7.5 ML/HR IV
     Route: 042
     Dates: start: 20040503, end: 20040504
  2. HEPARIN [Suspect]
     Indication: THROMBOSIS PROPHYLAXIS
     Dosage: 4550 UNITS
     Dates: start: 20040503
  3. MIDALZOLAM [Concomitant]
  4. FENTANYL [Concomitant]
  5. CEFADINE [Concomitant]
  6. ASPIRIN [Concomitant]
  7. PEPCID [Concomitant]
  8. CLOPIDOGREL BISULFATE [Concomitant]

REACTIONS (3)
  - BLOOD CREATINE PHOSPHOKINASE INCREASED [None]
  - BLOOD CREATINE PHOSPHOKINASE MB INCREASED [None]
  - POST PROCEDURAL HAEMORRHAGE [None]
